FAERS Safety Report 12421421 (Version 1)
Quarter: 2016Q2

REPORT INFORMATION
  Report Type: Spontaneous
  Country: US (occurrence: US)
  Receive Date: 20160531
  Receipt Date: 20160531
  Transmission Date: 20160815
  Serious: Yes (Other)
  Sender: FDA-Public Use
  Company Number: US-SUNOVION-2016SUN001326

PATIENT
  Age: 56 Year
  Sex: Male
  Weight: 82.99 kg

DRUGS (6)
  1. LATUDA [Suspect]
     Active Substance: LURASIDONE HYDROCHLORIDE
     Indication: ANXIETY
  2. XANAX [Concomitant]
     Active Substance: ALPRAZOLAM
     Indication: ABNORMAL DREAMS
     Dosage: 1 MG, HS
     Route: 048
  3. LATUDA [Suspect]
     Active Substance: LURASIDONE HYDROCHLORIDE
     Indication: BIPOLAR DISORDER
     Dosage: 40 MG, QD
     Route: 048
     Dates: start: 2016, end: 201605
  4. LATUDA [Suspect]
     Active Substance: LURASIDONE HYDROCHLORIDE
     Indication: POST-TRAUMATIC STRESS DISORDER
  5. LATUDA [Suspect]
     Active Substance: LURASIDONE HYDROCHLORIDE
     Indication: DEMENTIA
  6. HYDROCODONE [Concomitant]
     Active Substance: HYDROCODONE
     Indication: BACK PAIN
     Dosage: UNK, QD
     Route: 048

REACTIONS (6)
  - Swollen tongue [Recovered/Resolved]
  - Paraesthesia oral [Recovered/Resolved]
  - Lip discolouration [Recovered/Resolved]
  - Lip swelling [Recovered/Resolved]
  - Dyspnoea [Recovered/Resolved]
  - Off label use [Unknown]

NARRATIVE: CASE EVENT DATE: 201605
